FAERS Safety Report 21763796 (Version 2)
Quarter: 2023Q1

REPORT INFORMATION
  Report Type: Spontaneous
  Country: US (occurrence: US)
  Receive Date: 20221222
  Receipt Date: 20230103
  Transmission Date: 20230418
  Serious: No
  Sender: FDA-Public Use
  Company Number: US-SA-SAC20221219001450

PATIENT
  Age: 54 Year
  Sex: Female

DRUGS (1)
  1. DUPIXENT [Suspect]
     Active Substance: DUPILUMAB
     Dosage: 300 MG;FREQUENCY: OTHER
     Route: 058
     Dates: start: 20210224

REACTIONS (6)
  - Injection site pain [Unknown]
  - Lymphadenopathy [Unknown]
  - Glossodynia [Unknown]
  - Paraesthesia oral [Unknown]
  - Oropharyngeal pain [Unknown]
  - Injection site vesicles [Unknown]

NARRATIVE: CASE EVENT DATE: 20221220
